FAERS Safety Report 8107443-3 (Version None)
Quarter: 2012Q1

REPORT INFORMATION
  Report Type: 
  Country: None (occurrence: None)
  Receive Date: 20120127
  Receipt Date: 20110922
  Transmission Date: 20120608
  Serious: Yes (Other)
  Sender: FDA-Public Use
  Company Number: PHEH2011US04987

PATIENT
  Age: 41 Year
  Sex: Female

DRUGS (4)
  1. TRIAMCINOLONE [Concomitant]
  2. GILENYA [Suspect]
     Indication: MULTIPLE SCLEROSIS
     Dosage: 0.5 MG, DAILY, ORAL
     Route: 048
     Dates: start: 20110124
  3. TRIAMCINOLONE [Concomitant]
  4. ZOVIRAX [Concomitant]

REACTIONS (1)
  - HERPES ZOSTER [None]
